FAERS Safety Report 6206513-4 (Version None)
Quarter: 2009Q2

REPORT INFORMATION
  Report Type: 
  Country: None (occurrence: None)
  Receive Date: 20090528
  Receipt Date: 20090518
  Transmission Date: 20091009
  Serious: Yes (Other)
  Sender: FDA-Public Use
  Company Number: US-JNJFOC-20090504877

PATIENT
  Age: 7 Year
  Sex: Female
  Weight: 27.22 kg

DRUGS (2)
  1. TYLENOL (GELTAB) [Suspect]
  2. TYLENOL (GELTAB) [Suspect]
     Indication: ACCIDENTAL EXPOSURE
     Dosage: 4800 MG ONCE TOTAL (177 MG/KG), ORAL

REACTIONS (3)
  - ACCIDENTAL DRUG INTAKE BY CHILD [None]
  - ACCIDENTAL OVERDOSE [None]
  - PRODUCT QUALITY ISSUE [None]
